FAERS Safety Report 19283913 (Version 2)
Quarter: 2021Q4

REPORT INFORMATION
  Report Type: Spontaneous
  Country: US (occurrence: US)
  Receive Date: 20210520
  Receipt Date: 20211209
  Transmission Date: 20220303
  Serious: No
  Sender: FDA-Public Use
  Company Number: US-SA-SAC20210518000342

PATIENT
  Age: 51 Year
  Sex: Female

DRUGS (1)
  1. DUPIXENT [Suspect]
     Active Substance: DUPILUMAB
     Dosage: 300 MG, OTHER
     Route: 058
     Dates: start: 201907, end: 2021

REACTIONS (3)
  - Fatigue [Unknown]
  - Myalgia [Unknown]
  - Product dose omission issue [Unknown]

NARRATIVE: CASE EVENT DATE: 20190723
